FAERS Safety Report 23895701 (Version 2)
Quarter: 2025Q2

REPORT INFORMATION
  Report Type: Report from Study
  Country: US (occurrence: US)
  Receive Date: 20240524
  Receipt Date: 20250508
  Transmission Date: 20250717
  Serious: Yes (Hospitalization, Other)
  Sender: UCB
  Company Number: US-UCBSA-2024003929

PATIENT
  Age: 26 Year
  Sex: Male
  Weight: 72.109 kg

DRUGS (5)
  1. FINTEPLA [Suspect]
     Active Substance: FENFLURAMINE
     Indication: Severe myoclonic epilepsy of infancy
     Dosage: 6 MILLILITER, 2X/DAY (BID)
     Dates: start: 20211028
  2. FINTEPLA [Suspect]
     Active Substance: FENFLURAMINE
     Dosage: 8 MILLILITER, 2X/DAY (BID)
  3. LACOSAMIDE [Concomitant]
     Active Substance: LACOSAMIDE
     Indication: Severe myoclonic epilepsy of infancy
     Dosage: 300 MILLIGRAM, 2X/DAY (BID)
     Route: 048
     Dates: start: 201007
  4. EPIDIOLEX [Concomitant]
     Active Substance: CANNABIDIOL
     Indication: Severe myoclonic epilepsy of infancy
     Dosage: 10 M/G, SOLUTION
     Route: 048
     Dates: start: 201901
  5. ONFI [Concomitant]
     Active Substance: CLOBAZAM
     Indication: Product used for unknown indication
     Dosage: 40 MILLIGRAM, 2X/DAY (BID)
     Route: 048
     Dates: start: 201305

REACTIONS (6)
  - Tibia fracture [Recovering/Resolving]
  - Internal fixation of fracture [Recovering/Resolving]
  - Fibula fracture [Recovering/Resolving]
  - Seizure [Not Recovered/Not Resolved]
  - Off label use [Unknown]
  - Overdose [Unknown]

NARRATIVE: CASE EVENT DATE: 20231212
